FAERS Safety Report 11131937 (Version 1)
Quarter: 2015Q2

REPORT INFORMATION
  Report Type: Report from Study
  Country: FR (occurrence: FR)
  Receive Date: 20150522
  Receipt Date: 20150522
  Transmission Date: 20150821
  Serious: Yes (Hospitalization, Other)
  Sender: FDA-Public Use
  Company Number: FR-GLAXOSMITHKLINE-FR2015GSK070132

PATIENT
  Age: 56 Year
  Sex: Male

DRUGS (7)
  1. PLAVIX [Concomitant]
     Active Substance: CLOPIDOGREL BISULFATE
  2. IKOREL [Concomitant]
     Active Substance: NICORANDIL
  3. CARDENSIEL [Concomitant]
     Active Substance: BISOPROLOL FUMARATE
  4. KARDEGIC [Concomitant]
     Active Substance: ASPIRIN LYSINE
  5. TAHOR [Concomitant]
     Active Substance: ATORVASTATIN CALCIUM
  6. COVERSYL [Concomitant]
     Active Substance: PERINDOPRIL
  7. OMEGA-3-ACID ETHYL ESTERS. [Suspect]
     Active Substance: OMEGA-3-ACID ETHYL ESTERS
     Indication: ISCHAEMIC HEART DISEASE PROPHYLAXIS
     Dosage: UNK
     Dates: start: 20081010

REACTIONS (1)
  - Apnoea [Unknown]
